FAERS Safety Report 11883275 (Version 2)
Quarter: 2016Q1

REPORT INFORMATION
  Report Type: Report from Study
  Country: AU (occurrence: AU)
  Receive Date: 20151231
  Receipt Date: 20160122
  Transmission Date: 20160526
  Serious: Yes (Hospitalization)
  Sender: FDA-Public Use
  Company Number: AU-BIOGEN-2015BI063949

PATIENT
  Age: 40 Year
  Sex: Female

DRUGS (2)
  1. TECFIDERA [Suspect]
     Active Substance: DIMETHYL FUMARATE
     Indication: MULTIPLE SCLEROSIS
     Route: 048
     Dates: start: 20150302, end: 20160113
  2. TECFIDERA [Suspect]
     Active Substance: DIMETHYL FUMARATE
     Route: 048

REACTIONS (19)
  - Muscular weakness [Recovered/Resolved]
  - Dizziness [Unknown]
  - Malaise [Unknown]
  - Pain in jaw [Unknown]
  - Sensory disturbance [Unknown]
  - Vision blurred [Recovered/Resolved with Sequelae]
  - Pain [Unknown]
  - Balance disorder [Unknown]
  - Stress [Unknown]
  - Abasia [Recovered/Resolved]
  - Somnolence [Unknown]
  - Back pain [Unknown]
  - Tremor [Unknown]
  - Fatigue [Unknown]
  - Migraine [Unknown]
  - Gait disturbance [Unknown]
  - Multiple sclerosis relapse [Unknown]
  - Feeling hot [Unknown]
  - Coordination abnormal [Unknown]

NARRATIVE: CASE EVENT DATE: 201511
